FAERS Safety Report 9663910 (Version 2)
Quarter: 2013Q4

REPORT INFORMATION
  Report Type: Report from Study
  Country: ES (occurrence: ES)
  Receive Date: 20131101
  Receipt Date: 20131202
  Transmission Date: 20140711
  Serious: Yes (Death)
  Sender: FDA-Public Use
  Company Number: ES-ASTELLAS-2013EU009309

PATIENT
  Age: 9 Year
  Sex: 0

DRUGS (6)
  1. TACROLIMUS SYSTEMIC [Suspect]
     Indication: LUNG TRANSPLANT
     Dosage: UNK
     Route: 065
  2. TACROLIMUS SYSTEMIC [Suspect]
     Indication: IMMUNOSUPPRESSION
  3. MYCOPHENOLATE MOFETIL [Suspect]
     Indication: LUNG TRANSPLANT
     Dosage: UNK
     Route: 065
  4. MYCOPHENOLATE MOFETIL [Suspect]
     Indication: IMMUNOSUPPRESSION
  5. CORTICOSTEROID NOS [Suspect]
     Indication: LUNG TRANSPLANT
     Dosage: UNK
     Route: 065
  6. CORTICOSTEROID NOS [Suspect]
     Indication: IMMUNOSUPPRESSION

REACTIONS (2)
  - Off label use [Unknown]
  - Hypoxic-ischaemic encephalopathy [Fatal]
